FAERS Safety Report 10198028 (Version 1)
Quarter: 2014Q2

REPORT INFORMATION
  Report Type: Spontaneous
  Country: US (occurrence: US)
  Receive Date: 20140527
  Receipt Date: 20140527
  Transmission Date: 20141212
  Serious: No
  Sender: FDA-Public Use
  Company Number: US-NOVEN-13US006819

PATIENT
  Age: 5 Year
  Sex: Male
  Weight: 24.49 kg

DRUGS (4)
  1. DAYTRANA [Suspect]
     Indication: ATTENTION DEFICIT/HYPERACTIVITY DISORDER
     Dosage: 10 MG, UNK
     Route: 062
     Dates: start: 201303
  2. ALVESCO [Concomitant]
     Indication: ASTHMA
     Dosage: UNK
  3. ZYRTEC [Concomitant]
     Indication: ASTHMA
     Dosage: 2.5 MG, QD
     Route: 048
  4. ZYRTEC [Concomitant]
     Indication: HYPERSENSITIVITY

REACTIONS (2)
  - Vision blurred [Not Recovered/Not Resolved]
  - Off label use [Not Recovered/Not Resolved]
